FAERS Safety Report 13666347 (Version 1)
Quarter: 2017Q2

REPORT INFORMATION
  Report Type: Spontaneous
  Country: US (occurrence: US)
  Receive Date: 20170619
  Receipt Date: 20170619
  Transmission Date: 20170830
  Serious: No
  Sender: FDA-Public Use
  Company Number: US-ROCHE-1370944

PATIENT
  Sex: Female

DRUGS (1)
  1. XELODA [Suspect]
     Active Substance: CAPECITABINE
     Indication: PRODUCT USED FOR UNKNOWN INDICATION
     Dosage: 7 DAYS ON, 7 DAYS OFF
     Route: 048
     Dates: start: 20131230

REACTIONS (8)
  - Burning sensation [Unknown]
  - Laceration [Unknown]
  - Palmar-plantar erythrodysaesthesia syndrome [Unknown]
  - Skin exfoliation [Unknown]
  - Epistaxis [Not Recovered/Not Resolved]
  - Dry skin [Unknown]
  - Skin hyperpigmentation [Unknown]
  - Pain in extremity [Unknown]
